FAERS Safety Report 16786374 (Version 1)
Quarter: 2019Q3

REPORT INFORMATION
  Report Type: Spontaneous
  Country: US (occurrence: US)
  Receive Date: 20190909
  Receipt Date: 20190909
  Transmission Date: 20191005
  Serious: No
  Sender: FDA-Public Use
  Company Number: US-GALDERMA-US19042840

PATIENT
  Sex: Female

DRUGS (1)
  1. EPIDUO FORTE [Suspect]
     Active Substance: ADAPALENE\BENZOYL PEROXIDE
     Indication: ACNE
     Dosage: 0.3%/2.5%
     Route: 061
     Dates: start: 2019

REACTIONS (5)
  - Lip pain [Unknown]
  - Hypersensitivity [Unknown]
  - Pain of skin [Unknown]
  - Skin exfoliation [Unknown]
  - Lip exfoliation [Unknown]

NARRATIVE: CASE EVENT DATE: 2019
